FAERS Safety Report 9359100 (Version 1)
Quarter: 2013Q2

REPORT INFORMATION
  Report Type: Spontaneous
  Country: GB (occurrence: GB)
  Receive Date: 20130620
  Receipt Date: 20130620
  Transmission Date: 20140414
  Serious: Yes (Death)
  Sender: FDA-Public Use
  Company Number: GB-009507513-1306GBR008851

PATIENT
  Age: 85 Year
  Sex: Female
  Weight: 60 kg

DRUGS (7)
  1. ALENDRONATE SODIUM [Suspect]
     Indication: RENAL FAILURE CHRONIC
     Dosage: 70 MG, 1/ 1 WEEKS
     Route: 048
  2. ADCAL-D3 [Concomitant]
     Dosage: 2/ 1 DAYS
     Route: 048
  3. BENDROFLUMETHIAZIDE [Concomitant]
     Dosage: 2.5 MG
     Route: 048
  4. ACETAMINOPHEN (+) CODEINE PHOSPHATE [Concomitant]
     Dosage: 2 DF, 4/ 1 DAY
     Route: 048
  5. LANSOPRAZOLE [Concomitant]
     Dosage: 30 MG, 1/ 1 DAYS
     Dates: start: 20130509
  6. LISINOPRIL [Concomitant]
     Dosage: 5 MG,1/ 1 DAYS
     Route: 048
  7. NORTRIPTYLINE [Concomitant]
     Dosage: 25 MG, 1/ 1 DAYS
     Route: 048

REACTIONS (2)
  - Gastrointestinal haemorrhage [Fatal]
  - Oesophageal ulcer [Not Recovered/Not Resolved]
